FAERS Safety Report 7645086-6 (Version None)
Quarter: 2011Q3

REPORT INFORMATION
  Report Type: 
  Country: None (occurrence: None)
  Receive Date: 20110729
  Receipt Date: 20110722
  Transmission Date: 20111222
  Serious: Yes (Other)
  Sender: FDA-Public Use
  Company Number: PHEH2010US03479

PATIENT
  Sex: Female

DRUGS (35)
  1. DOXEPIN [Concomitant]
     Dosage: 100 MG, BID
  2. NITROGLYCERIN [Concomitant]
  3. XANAX [Concomitant]
     Dosage: 2 MG, BID
  4. LOTREL [Concomitant]
  5. ZELNORM [Suspect]
     Indication: GASTRIC DISORDER
     Dosage: 6 MG, BID
  6. WELLBUTRIN XL [Concomitant]
  7. IBUPROFEN [Concomitant]
  8. FLOMAX [Concomitant]
  9. PROMETHAZINE [Concomitant]
     Dosage: 50 MG, Q8H
  10. HYDROCHLOROTHIAZIDE [Concomitant]
     Dosage: 25 MG, QD
  11. DARVOCET-N 50 [Concomitant]
  12. GLUCOPHAGE [Concomitant]
     Dosage: 500 MG, QD
  13. NEURONTIN [Concomitant]
     Dosage: 400 MG, QHS
  14. COMPAZINE [Concomitant]
     Dosage: 5 MG, DAILY
  15. LORCET-HD [Concomitant]
  16. ZANAFLEX [Concomitant]
  17. PROTONIX [Concomitant]
     Dosage: 40 MG, QD
  18. SKELAXIN [Concomitant]
  19. ZYRTEC [Concomitant]
  20. XALATAN [Concomitant]
  21. VISTARIL [Concomitant]
     Dosage: 50 MG, TID
  22. REGLAN [Concomitant]
  23. METFORMIN HCL [Concomitant]
  24. HYDROCODONE BITARTRATE [Concomitant]
  25. CLARINEX [Concomitant]
  26. SINGULAIR [Concomitant]
  27. PRILOSEC [Concomitant]
  28. ALBUTEROL SULFATE AUTOHALER [Concomitant]
  29. RESTORIL [Concomitant]
     Dosage: 30 MG, QHS
  30. EFFEXOR XR [Concomitant]
     Dosage: 75 MG, QD
  31. NEXIUM [Concomitant]
  32. MACROBID [Concomitant]
  33. ARTHROTEC [Concomitant]
     Dosage: 50 MG, DAILY
  34. AMBIEN [Concomitant]
  35. PREVACID [Concomitant]

REACTIONS (9)
  - HEPATIC STEATOSIS [None]
  - DYSPHAGIA [None]
  - NAUSEA [None]
  - ABDOMINAL PAIN UPPER [None]
  - DIZZINESS [None]
  - INJURY [None]
  - CARDIAC DISORDER [None]
  - CHEST PAIN [None]
  - PAIN [None]
